FAERS Safety Report 10190466 (Version 1)
Quarter: 2014Q2

REPORT INFORMATION
  Report Type: Spontaneous
  Country: US (occurrence: US)
  Receive Date: 20140522
  Receipt Date: 20140522
  Transmission Date: 20141212
  Serious: No
  Sender: FDA-Public Use
  Company Number: US-SANOFI-AVENTIS-2013SA064529

PATIENT
  Age: 71 Year
  Sex: Female
  Weight: 104 kg

DRUGS (7)
  1. ELOXATIN [Suspect]
     Indication: COLON CANCER
     Route: 041
     Dates: start: 201210, end: 20130311
  2. MINOXIDIL [Concomitant]
     Indication: HYPERTENSION
     Dosage: TAKEN FROM- EARLY 2000
     Route: 065
  3. ASPIRIN [Concomitant]
     Dosage: TAKEN FROM- EARLY 2000
     Route: 065
  4. EXFORGE [Concomitant]
     Indication: HYPERTENSION
     Dosage: TAKEN FROM- EARLY 2000, DOSE-10/320 TAB
     Route: 065
  5. CARVEDILOL [Concomitant]
     Indication: HYPERTENSION
     Dosage: TAKEN FROM- EARLY 2000
     Route: 065
  6. LASIX [Concomitant]
     Indication: HYPERTENSION
     Dosage: TAKEN FROM- EARLY 2000
     Route: 065
  7. TYLENOL [Concomitant]
     Dosage: FREQUENCY- AS NEEDED.
     Route: 065

REACTIONS (2)
  - Feeling hot [Unknown]
  - Hypoaesthesia [Not Recovered/Not Resolved]
